FAERS Safety Report 4389612-1 (Version None)
Quarter: 2004Q2

REPORT INFORMATION
  Report Type: 
  Country: None (occurrence: None)
  Receive Date: 20040629
  Receipt Date: 20040213
  Transmission Date: 20050107
  Serious: Yes (Hospitalization)
  Sender: FDA-Public Use
  Company Number: US-JNFOC-20040203675

PATIENT
  Age: 37 Year
  Sex: Male

DRUGS (13)
  1. DURAGESIC [Suspect]
     Indication: PAIN
     Dosage: 500 UG/HR, 1 IN 72 HOUR, TRANSDERMAL
     Route: 062
     Dates: end: 20040129
  2. DURAGESIC [Suspect]
     Indication: PAIN
     Dosage: 500 UG/HR, 1 IN 72 HOUR, TRANSDERMAL
     Route: 062
     Dates: start: 20040201
  3. FENTANYL [Suspect]
     Indication: PAIN
     Dosage: 150 UG/HR, SUBCUTANEOUS
     Route: 058
     Dates: end: 20040129
  4. FENTANYL [Suspect]
     Indication: PAIN
     Dosage: 150 UG/HR, SUBCUTANEOUS
     Route: 058
     Dates: start: 20040201
  5. ... [Concomitant]
  6. NEXIUM [Concomitant]
  7. EFFEXOR [Concomitant]
  8. KLONOPIN [Concomitant]
  9. NEURONTIN [Concomitant]
  10. AMBIEN [Concomitant]
  11. SENNA (SENNA) [Concomitant]
  12. MAGNESIUM OXIDE (MAGNESIUM OXIDE) [Concomitant]
  13. WELLBUTRIN [Concomitant]

REACTIONS (7)
  - ABDOMINAL PAIN [None]
  - ASTHENIA [None]
  - BINOCULAR EYE MOVEMENT DISORDER [None]
  - DRUG WITHDRAWAL SYNDROME [None]
  - HYPERHIDROSIS [None]
  - NECK MASS [None]
  - SWELLING FACE [None]
